FAERS Safety Report 8927839 (Version 1)
Quarter: 2012Q4

REPORT INFORMATION
  Report Type: 
  Country: FR (occurrence: FR)
  Receive Date: 20121127
  Receipt Date: 20121127
  Transmission Date: 20130627
  Serious: Yes (Hospitalization)
  Sender: FDA-Public Use
  Company Number: FR-ROCHE-1160108

PATIENT
  Age: 71 Year
  Sex: Male

DRUGS (5)
  1. MABTHERA [Suspect]
     Indication: B-CELL LYMPHOMA
     Route: 042
     Dates: start: 20111017, end: 20120105
  2. MABTHERA [Suspect]
     Route: 042
     Dates: start: 20120213
  3. CHLORAMBUCIL [Suspect]
     Indication: PRODUCT USED FOR UNKNOWN INDICATION
     Dosage: 6 tablets in the morning from Day1 to Day14
     Route: 048
     Dates: start: 20111017, end: 20120119
  4. CHLORAMBUCIL [Suspect]
     Route: 048
     Dates: start: 20120213
  5. KARDEGIC [Concomitant]

REACTIONS (1)
  - Hepatitis [Recovered/Resolved]
